FAERS Safety Report 12253223 (Version 1)
Quarter: 2016Q2

REPORT INFORMATION
  Report Type: Spontaneous
  Country: US (occurrence: None)
  Receive Date: 20160408
  Receipt Date: 20160408
  Transmission Date: 20160815
  Serious: No
  Sender: FDA-Public Use
  Company Number: None

PATIENT
  Age: 18 Year
  Sex: Male
  Weight: 52.1 kg

DRUGS (1)
  1. COAGADEX [Suspect]
     Active Substance: COAGULATION FACTOR X HUMAN
     Indication: FACTOR X DEFICIENCY
     Route: 040
     Dates: start: 20160406, end: 20160406

REACTIONS (7)
  - Abdominal pain [None]
  - Urticaria [None]
  - Hypersensitivity [None]
  - Pruritus [None]
  - Cough [None]
  - Dizziness [None]
  - Palmar erythema [None]

NARRATIVE: CASE EVENT DATE: 20160406
